FAERS Safety Report 8535262-2 (Version None)
Quarter: 2012Q3

REPORT INFORMATION
  Report Type: 
  Country: None (occurrence: None)
  Receive Date: 20120725
  Receipt Date: 20120713
  Transmission Date: 20120928
  Serious: Yes (Hospitalization)
  Sender: FDA-Public Use
  Company Number: JP-AMGEN-JPNSP2012041052

PATIENT
  Age: 60 Year
  Sex: Female

DRUGS (4)
  1. ENBREL [Suspect]
     Indication: RHEUMATOID ARTHRITIS
     Dosage: 25 MG, WEEKLY
     Route: 058
     Dates: start: 20110801, end: 20120301
  2. PREDNISOLONE [Concomitant]
     Dosage: 10 MG, 1X/DAY
  3. FRAMYCETIN [Concomitant]
     Dosage: UNK
  4. PREDNISOLONE [Concomitant]
     Dosage: 7 MG, 1X/DAY

REACTIONS (1)
  - PEMPHIGOID [None]
